FAERS Safety Report 10043768 (Version 1)
Quarter: 2014Q1

REPORT INFORMATION
  Report Type: Spontaneous
  Country: US (occurrence: None)
  Receive Date: 20140327
  Receipt Date: 20140327
  Transmission Date: 20141002
  Serious: Yes (Other)
  Sender: FDA-Public Use
  Company Number: None

PATIENT
  Age: 70 Year
  Sex: Female

DRUGS (2)
  1. TEMOZOLOMIDE [Suspect]
     Indication: BRAIN NEOPLASM
     Route: 048
     Dates: start: 20130610, end: 20140304
  2. TEMOZOLOMIDE [Suspect]
     Indication: BRAIN NEOPLASM
     Route: 048
     Dates: start: 20130510, end: 20140304

REACTIONS (1)
  - Herpes zoster [None]
